FAERS Safety Report 19618142 (Version 2)
Quarter: 2022Q2

REPORT INFORMATION
  Report Type: Spontaneous
  Country: US (occurrence: None)
  Receive Date: 20210727
  Receipt Date: 20220621
  Transmission Date: 20220720
  Serious: No
  Sender: FDA-Public Use
  Company Number: US-ROCHE-2736955

PATIENT
  Sex: Female

DRUGS (2)
  1. XELODA [Suspect]
     Active Substance: CAPECITABINE
     Indication: Product used for unknown indication
     Route: 048
  2. TUKYSA [Suspect]
     Active Substance: TUCATINIB
     Indication: Product used for unknown indication
     Route: 065

REACTIONS (9)
  - Gait disturbance [Unknown]
  - Mental impairment [Unknown]
  - Feeding disorder [Unknown]
  - Diarrhoea [Unknown]
  - Rash [Unknown]
  - Unevaluable event [Unknown]
  - Palmar-plantar erythrodysaesthesia syndrome [Unknown]
  - Skin ulcer [Unknown]
  - Pain in extremity [Unknown]
